FAERS Safety Report 8013170-3 (Version None)
Quarter: 2011Q4

REPORT INFORMATION
  Report Type: 
  Country: None (occurrence: None)
  Receive Date: 20111229
  Receipt Date: 20111215
  Transmission Date: 20120403
  Serious: Yes (Life-Threatening, Hospitalization)
  Sender: FDA-Public Use
  Company Number: DE-MYLANLABS-2011S1025709

PATIENT
  Age: 71 Year
  Sex: Male
  Weight: 120 kg

DRUGS (1)
  1. LISINOPRIL [Suspect]
     Indication: HYPERTENSION
     Route: 048
     Dates: start: 19980101, end: 20110101

REACTIONS (3)
  - TONGUE OEDEMA [None]
  - ANGIOEDEMA [None]
  - RESPIRATORY FAILURE [None]
